FAERS Safety Report 16491321 (Version 1)
Quarter: 2019Q3

REPORT INFORMATION
  Report Type: Spontaneous
  Country: US (occurrence: US)
  Receive Date: 20190627
  Receipt Date: 20190627
  Transmission Date: 20191004
  Serious: Yes (Disabling)
  Sender: FDA-Public Use
  Company Number: None

PATIENT
  Age: 36 Year
  Sex: Female
  Weight: 67.5 kg

DRUGS (4)
  1. MULTIVITAMINS [Concomitant]
     Active Substance: VITAMINS
  2. BACTRIM [Suspect]
     Active Substance: SULFAMETHOXAZOLE\TRIMETHOPRIM
  3. NORCO [Concomitant]
     Active Substance: ACETAMINOPHEN\HYDROCODONE BITARTRATE
  4. IODINE SUPPLEMENTS [Concomitant]

REACTIONS (10)
  - Apparent death [None]
  - Nausea [None]
  - Pain [None]
  - Hypothermia [None]
  - Raynaud^s phenomenon [None]
  - Urticaria [None]
  - Weight decreased [None]
  - Tremor [None]
  - Hypersensitivity [None]
  - Quality of life decreased [None]

NARRATIVE: CASE EVENT DATE: 20141016
